FAERS Safety Report 15572277 (Version 1)
Quarter: 2018Q4

REPORT INFORMATION
  Report Type: Spontaneous
  Country: GB (occurrence: GB)
  Receive Date: 20181031
  Receipt Date: 20181031
  Transmission Date: 20190205
  Serious: Yes (Life-Threatening, Other)
  Sender: FDA-Public Use
  Company Number: GB-FRESENIUS KABI-FK201811329

PATIENT
  Age: 4 Month
  Sex: Female

DRUGS (1)
  1. CLINDAMYCIN. [Suspect]
     Active Substance: CLINDAMYCIN
     Indication: PAROTITIS
     Route: 042

REACTIONS (6)
  - Staphylococcal infection [Recovered/Resolved]
  - Septic shock [Recovered/Resolved]
  - Abscess jaw [Recovered/Resolved]
  - Disease progression [Recovered/Resolved]
  - Staphylococcal sepsis [Recovered/Resolved]
  - Septic embolus [Recovered/Resolved]
